FAERS Safety Report 22114786 (Version 4)
Quarter: 2023Q2

REPORT INFORMATION
  Report Type: Report from Study
  Country: GB (occurrence: GB)
  Receive Date: 20230320
  Receipt Date: 20230622
  Transmission Date: 20230721
  Serious: Yes (Death, Hospitalization, Other)
  Sender: FDA-Public Use
  Company Number: GB-JNJFOC-20220811761

PATIENT
  Age: 53 Year
  Sex: Female
  Weight: 64.2 kg

DRUGS (1)
  1. TECLISTAMAB [Suspect]
     Active Substance: TECLISTAMAB
     Indication: Plasma cell myeloma
     Route: 065
     Dates: start: 20220715, end: 20220923

REACTIONS (4)
  - Plasma cell myeloma [Fatal]
  - Cytomegalovirus viraemia [Not Recovered/Not Resolved]
  - Spinal cord compression [Not Recovered/Not Resolved]
  - Bell^s palsy [Recovered/Resolved]

NARRATIVE: CASE EVENT DATE: 20220731
